FAERS Safety Report 20025627 (Version 3)
Quarter: 2021Q4

REPORT INFORMATION
  Report Type: Spontaneous
  Country: CN (occurrence: CN)
  Receive Date: 20211102
  Receipt Date: 20211121
  Transmission Date: 20220303
  Serious: Yes (Life-Threatening, Hospitalization, Other)
  Sender: FDA-Public Use
  Company Number: CN-009507513-2110CHN008781

PATIENT
  Age: 65 Year
  Sex: Male
  Weight: 83 kg

DRUGS (3)
  1. KEYTRUDA [Suspect]
     Active Substance: PEMBROLIZUMAB
     Indication: Neoplasm
     Dosage: 100 MILLIGRAM
     Route: 041
     Dates: start: 20210609, end: 20210907
  2. PACLITAXEL [Suspect]
     Active Substance: PACLITAXEL
     Dosage: UNK
     Dates: start: 20210609, end: 20210907
  3. CARBOPLATIN [Suspect]
     Active Substance: CARBOPLATIN
     Dosage: UNK
     Dates: start: 20210609, end: 20210907

REACTIONS (16)
  - Thyrotoxic crisis [Recovering/Resolving]
  - Temperature intolerance [Unknown]
  - Full blood count decreased [Unknown]
  - Eating disorder [Unknown]
  - Intensive care [Unknown]
  - Pneumonia [Unknown]
  - Weight decreased [Unknown]
  - Asthenia [Unknown]
  - Decreased appetite [Unknown]
  - Cough [Unknown]
  - Heart rate increased [Unknown]
  - Urine output decreased [Unknown]
  - Hypotension [Unknown]
  - Pyrexia [Unknown]
  - Inappropriate schedule of product administration [Unknown]
  - Underdose [Unknown]

NARRATIVE: CASE EVENT DATE: 20210101
